FAERS Safety Report 4631822-X (Version None)
Quarter: 2005Q2

REPORT INFORMATION
  Report Type: 
  Country: None (occurrence: None)
  Receive Date: 20050411
  Receipt Date: 20050330
  Transmission Date: 20051028
  Serious: Yes (Hospitalization, Other)
  Sender: FDA-Public Use
  Company Number: US-JNJFOC-20041100454

PATIENT
  Sex: Male
  Weight: 104.33 kg

DRUGS (6)
  1. REMICADE [Suspect]
     Route: 042
  2. REMICADE [Suspect]
     Route: 042
  3. REMICADE [Suspect]
     Route: 042
  4. REMICADE [Suspect]
     Indication: CROHN'S DISEASE
     Route: 042
  5. METHOTREXATE [Suspect]
     Indication: CROHN'S DISEASE
  6. PREDNISONE TAB [Suspect]

REACTIONS (16)
  - ANXIETY [None]
  - ASTHMA [None]
  - BLOOD GLUCOSE INCREASED [None]
  - BLOOD MAGNESIUM DECREASED [None]
  - BRONCHITIS [None]
  - DEPRESSION [None]
  - HAEMATEMESIS [None]
  - HISTOPLASMOSIS DISSEMINATED [None]
  - HYPOKALAEMIA [None]
  - NAUSEA [None]
  - NEURITIS [None]
  - PERICARDITIS [None]
  - PSORIASIS [None]
  - PYREXIA [None]
  - VIRAL INFECTION [None]
  - VOMITING [None]
